FAERS Safety Report 24259902 (Version 1)
Quarter: 2024Q3

REPORT INFORMATION
  Report Type: Spontaneous
  Country: US (occurrence: None)
  Receive Date: 20240827
  Receipt Date: 20240827
  Transmission Date: 20241016
  Serious: Yes (Life-Threatening, Hospitalization, Other)
  Sender: Public
  Company Number: None

PATIENT
  Age: 44 Year
  Sex: Female
  Weight: 94.2 kg

DRUGS (1)
  1. LITHIUM [Suspect]
     Active Substance: LITHIUM
     Dosage: FREQUENCY : 3 TIMES A DAY;?
     Route: 048
     Dates: start: 20220818, end: 20240203

REACTIONS (3)
  - Antipsychotic drug level above therapeutic [None]
  - Electroencephalogram abnormal [None]
  - Encephalopathy [None]

NARRATIVE: CASE EVENT DATE: 20240127
